FAERS Safety Report 6249884-5 (Version None)
Quarter: 2009Q2

REPORT INFORMATION
  Report Type: 
  Country: None (occurrence: None)
  Receive Date: 20090629
  Receipt Date: 20090624
  Transmission Date: 20091009
  Serious: Yes (Death)
  Sender: FDA-Public Use
  Company Number: JP-SANOFI-SYNTHELABO-F01200900607

PATIENT
  Sex: Male
  Weight: 45 kg

DRUGS (4)
  1. TETUCUR [Concomitant]
     Dosage: 100 MG
     Route: 048
     Dates: end: 20090517
  2. FAMOTIDINE [Concomitant]
     Route: 048
     Dates: end: 20090517
  3. LACTOMIN [Concomitant]
     Route: 048
     Dates: end: 20090517
  4. CLOPIDOGREL [Suspect]
     Indication: CEREBRAL ISCHAEMIA
     Dosage: 50 MG
     Route: 048
     Dates: start: 20090323, end: 20090517

REACTIONS (1)
  - DEATH [None]
